FAERS Safety Report 16275622 (Version 2)
Quarter: 2019Q2

REPORT INFORMATION
  Report Type: Report from Study
  Country: US (occurrence: US)
  Receive Date: 20190506
  Receipt Date: 20190607
  Transmission Date: 20190711
  Serious: Yes (Hospitalization)
  Sender: FDA-Public Use
  Company Number: US-SA-2016SA018450

PATIENT
  Age: 82 Year
  Sex: Female

DRUGS (2)
  1. INSULIN GLARGINE [Suspect]
     Active Substance: INSULIN GLARGINE
     Dosage: 18 DF, QD
     Route: 058
     Dates: start: 201512
  2. INSULIN GLARGINE [Suspect]
     Active Substance: INSULIN GLARGINE
     Indication: TYPE 2 DIABETES MELLITUS
     Dosage: 15 IU
     Route: 058

REACTIONS (4)
  - Unevaluable event [Unknown]
  - Dyspnoea [Recovered/Resolved]
  - Peripheral swelling [Not Recovered/Not Resolved]
  - Blood glucose increased [Unknown]
